FAERS Safety Report 13393725 (Version 3)
Quarter: 2018Q2

REPORT INFORMATION
  Report Type: Report from Study
  Country: CA (occurrence: CA)
  Receive Date: 20170331
  Receipt Date: 20180406
  Transmission Date: 20180711
  Serious: Yes (Hospitalization, Other)
  Sender: FDA-Public Use
  Company Number: CA-BRISTOL-MYERS SQUIBB COMPANY-BMS-2017-025576

PATIENT
  Age: 72 Year
  Sex: Male

DRUGS (1)
  1. ABATACEPT [Suspect]
     Active Substance: ABATACEPT
     Indication: RHEUMATOID ARTHRITIS
     Dosage: 125 MG, QWK
     Route: 058
     Dates: start: 20161213

REACTIONS (4)
  - Dysgeusia [Unknown]
  - Bladder operation [Recovering/Resolving]
  - Calculus bladder [Unknown]
  - Weight decreased [Unknown]

NARRATIVE: CASE EVENT DATE: 20170321
